FAERS Safety Report 21622372 (Version 6)
Quarter: 2023Q2

REPORT INFORMATION
  Report Type: Spontaneous
  Country: US (occurrence: US)
  Receive Date: 20221121
  Receipt Date: 20230620
  Transmission Date: 20230722
  Serious: Yes (Other)
  Sender: FDA-Public Use
  Company Number: US-SA-SAC20221118000318

PATIENT
  Age: 70 Year
  Sex: Male
  Weight: 78.29 kg

DRUGS (2)
  1. CAPRELSA [Suspect]
     Active Substance: VANDETANIB
     Indication: Thyroid cancer
     Dosage: 100 MG, QD
     Route: 048
     Dates: start: 20221031
  2. CAPRELSA [Suspect]
     Active Substance: VANDETANIB
     Dosage: 300 MG, QD
     Route: 048
     Dates: start: 20221031

REACTIONS (16)
  - Clostridium difficile infection [Unknown]
  - Abdominal discomfort [Unknown]
  - Sunburn [Unknown]
  - Ear pain [Unknown]
  - Migraine [Unknown]
  - Sleep disorder [Unknown]
  - Ageusia [Unknown]
  - Blood potassium decreased [Unknown]
  - Insomnia [Unknown]
  - Diarrhoea [Unknown]
  - Fatigue [Unknown]
  - Decreased appetite [Unknown]
  - Dehydration [Unknown]
  - Dry skin [Unknown]
  - Dysgeusia [Unknown]
  - Pruritus [Unknown]

NARRATIVE: CASE EVENT DATE: 20230101
